FAERS Safety Report 11861585 (Version 2)
Quarter: 2016Q1

REPORT INFORMATION
  Report Type: Spontaneous
  Country: AU (occurrence: AU)
  Receive Date: 20151222
  Receipt Date: 20160114
  Transmission Date: 20160526
  Serious: Yes (Other)
  Sender: FDA-Public Use
  Company Number: AU-JNJFOC-20151216623

PATIENT
  Age: 48 Year
  Sex: Female
  Weight: 132 kg

DRUGS (4)
  1. PERINDO [Concomitant]
     Active Substance: PERINDOPRIL
     Route: 065
  2. STELARA [Suspect]
     Active Substance: USTEKINUMAB
     Indication: PSORIASIS
     Route: 058
     Dates: start: 20141231
  3. METHOTREXATE [Suspect]
     Active Substance: METHOTREXATE
     Indication: PRODUCT USED FOR UNKNOWN INDICATION
     Route: 065
     Dates: start: 2015
  4. PRIMOLUT N [Concomitant]
     Active Substance: NORETHINDRONE
     Route: 065

REACTIONS (1)
  - Thyroid cancer metastatic [Not Recovered/Not Resolved]

NARRATIVE: CASE EVENT DATE: 201510
